FAERS Safety Report 8951367 (Version 2)
Quarter: 2013Q1

REPORT INFORMATION
  Report Type: Spontaneous
  Country: US (occurrence: US)
  Receive Date: 20121207
  Receipt Date: 20130214
  Transmission Date: 20140127
  Serious: Yes (Other)
  Sender: FDA-Public Use
  Company Number: US-JNJFOC-20121200178

PATIENT
  Sex: Female

DRUGS (1)
  1. DOXORUBICIN [Suspect]
     Indication: OVARIAN EPITHELIAL CANCER
     Dosage: PATIENT RECEIVED ONLY ONE CYCLE
     Route: 042

REACTIONS (1)
  - Aortic aneurysm [Unknown]
